FAERS Safety Report 7377467-2 (Version None)
Quarter: 2011Q1

REPORT INFORMATION
  Report Type: 
  Country: None (occurrence: None)
  Receive Date: 20110328
  Receipt Date: 20110315
  Transmission Date: 20110831
  Serious: Yes (Hospitalization, Other)
  Sender: FDA-Public Use
  Company Number: PHEH2008US11660

PATIENT
  Sex: Male
  Weight: 92.517 kg

DRUGS (12)
  1. EXJADE [Suspect]
     Indication: IRON OVERLOAD
     Dosage: UNK
     Dates: end: 20080304
  2. LASIX [Concomitant]
     Dosage: 40 MG, BID
     Route: 048
  3. EXJADE [Suspect]
     Indication: SICKLE CELL ANAEMIA
     Dosage: 1500 MG, QD
     Route: 048
     Dates: start: 20071003, end: 20080212
  4. MS CONTIN [Concomitant]
     Dosage: 800 MG EVERY 8 HR
     Route: 048
  5. FOLIC ACID [Concomitant]
     Dosage: 4 MG, QD
     Route: 048
  6. HYDREA [Concomitant]
     Dosage: 1500 MG, QD
     Route: 048
  7. LOVENOX [Concomitant]
     Dosage: 100 MG EVERY 12 HOUR
  8. REGLAN [Concomitant]
     Dosage: 10 MG, QID
  9. ZINC [Concomitant]
     Dosage: 220 MG, QD
  10. MAGNESIUM SULFATE [Concomitant]
     Dosage: 60 MG EVERY 2 HR PRN
  11. COMPAZINE [Concomitant]
     Dosage: 10 MG EVERY 6 HR PRN
  12. NEXIUM [Concomitant]
     Dosage: 40 MG, QD
     Route: 048

REACTIONS (6)
  - RASH PRURITIC [None]
  - RASH MACULAR [None]
  - PAIN [None]
  - SICKLE CELL ANAEMIA WITH CRISIS [None]
  - RASH [None]
  - SKIN ULCER [None]
